FAERS Safety Report 6544533-0 (Version None)
Quarter: 2010Q1

REPORT INFORMATION
  Report Type: 
  Country: None (occurrence: None)
  Receive Date: 20100121
  Receipt Date: 20091221
  Transmission Date: 20100710
  Serious: No
  Sender: FDA-Public Use
  Company Number: US-BAYER-200943630NA

PATIENT
  Age: 87 Year
  Sex: Female

DRUGS (1)
  1. SOTALOL [Suspect]
     Indication: DRUG USE FOR UNKNOWN INDICATION

REACTIONS (2)
  - COUGH [None]
  - DYSPNOEA [None]
